FAERS Safety Report 7175639 (Version 2)
Quarter: 2013Q1

REPORT INFORMATION
  Report Type: Spontaneous
  Country: NO (occurrence: None)
  Receive Date: 20091030
  Receipt Date: 20130115
  Transmission Date: 20140127
  Serious: Yes (Other)
  Sender: FDA-Public Use
  Company Number: 2009AP004290

PATIENT
  Sex: Female

DRUGS (2)
  1. CARBAMAZEPINE [Suspect]
     Indication: EPILEPSY
     Dosage: 500 MG; QD; 400 MG; QD; 800 MG; QD
  2. LEVETIRACETAM [Suspect]
     Indication: EPILEPSY

REACTIONS (6)
  - Grand mal convulsion [None]
  - Complex partial seizures [None]
  - Maternal exposure during pregnancy [None]
  - Convulsion [None]
  - Anticonvulsant drug level decreased [None]
  - Pregnancy [None]
